FAERS Safety Report 17072434 (Version 1)
Quarter: 2019Q4

REPORT INFORMATION
  Report Type: Spontaneous
  Country: US (occurrence: US)
  Receive Date: 20191124
  Receipt Date: 20191124
  Transmission Date: 20200122
  Serious: Yes (Life-Threatening, Hospitalization, Disabling)
  Sender: FDA-Public Use
  Company Number: None

PATIENT
  Age: 74 Year
  Sex: Female
  Weight: 53.1 kg

DRUGS (8)
  1. CELEBREX [Concomitant]
     Active Substance: CELECOXIB
  2. VIT D [Concomitant]
     Active Substance: VITAMIN D NOS
  3. BONIVA [Suspect]
     Active Substance: IBANDRONATE SODIUM
     Indication: OSTEOPOROSIS
     Dosage: ?          OTHER FREQUENCY:MONTHLY;?
     Route: 048
     Dates: start: 20191001, end: 20191104
  4. HYDROCHLOROTHIAZIDE AND LISINOPRIL [Concomitant]
     Active Substance: HYDROCHLOROTHIAZIDE\LISINOPRIL
  5. ASPIRIN. [Concomitant]
     Active Substance: ASPIRIN
  6. PRAVASTATIN. [Concomitant]
     Active Substance: PRAVASTATIN
  7. ALLOPURINOL. [Concomitant]
     Active Substance: ALLOPURINOL
  8. METOPROLOL. [Concomitant]
     Active Substance: METOPROLOL

REACTIONS (14)
  - Chills [None]
  - Anxiety [None]
  - Suicidal behaviour [None]
  - Tremor [None]
  - Muscular weakness [None]
  - Daydreaming [None]
  - Insomnia [None]
  - Urinary tract infection [None]
  - Nervousness [None]
  - Condition aggravated [None]
  - Bronchitis [None]
  - Arthralgia [None]
  - Dyspnoea [None]
  - Blood lactic acid increased [None]

NARRATIVE: CASE EVENT DATE: 20191114
